FAERS Safety Report 8172769-4 (Version None)
Quarter: 2012Q1

REPORT INFORMATION
  Report Type: 
  Country: None (occurrence: None)
  Receive Date: 20120229
  Receipt Date: 20120222
  Transmission Date: 20120608
  Serious: Yes (Hospitalization)
  Sender: FDA-Public Use
  Company Number: US-SANOFI-AVENTIS-2012SA011710

PATIENT
  Age: 71 Year
  Sex: Female

DRUGS (4)
  1. LANTUS [Suspect]
     Dosage: DOSE:30 UNIT(S)
     Route: 058
  2. JANUVIA [Concomitant]
  3. SOLOSTAR [Suspect]
  4. AMARYL [Concomitant]

REACTIONS (2)
  - UTERINE CANCER [None]
  - VISUAL IMPAIRMENT [None]
